FAERS Safety Report 17508902 (Version 1)
Quarter: 2020Q1

REPORT INFORMATION
  Report Type: Spontaneous
  Country: US (occurrence: US)
  Receive Date: 20200306
  Receipt Date: 20200306
  Transmission Date: 20200409
  Serious: No
  Sender: FDA-Public Use
  Company Number: None

PATIENT
  Age: 73 Year
  Sex: Male
  Weight: 76.5 kg

DRUGS (2)
  1. HYDROCHLORTHIAZIDE [Suspect]
     Active Substance: HYDROCHLOROTHIAZIDE
     Indication: HYPERTENSION
     Dosage: ?          QUANTITY:1 CAPSULE(S);?
     Route: 048
  2. HCTZ [Concomitant]
     Active Substance: HYDROCHLOROTHIAZIDE

REACTIONS (3)
  - Product substitution issue [None]
  - Therapeutic response decreased [None]
  - Blood pressure increased [None]

NARRATIVE: CASE EVENT DATE: 20200204
